FAERS Safety Report 19742843 (Version 2)
Quarter: 2021Q3

REPORT INFORMATION
  Report Type: Other
  Country: JP (occurrence: JP)
  Receive Date: 20210825
  Receipt Date: 20210827
  Transmission Date: 20211014
  Serious: Yes (Other)
  Sender: FDA-Public Use
  Company Number: JP-ROCHE-2893330

PATIENT
  Age: 76 Year
  Sex: Male
  Weight: 59.6 kg

DRUGS (5)
  1. BEVACIZUMAB. [Suspect]
     Active Substance: BEVACIZUMAB
     Indication: LUNG ADENOCARCINOMA
     Route: 041
     Dates: start: 20210722
  2. ATEZOLIZUMAB. [Suspect]
     Active Substance: ATEZOLIZUMAB
     Indication: LUNG ADENOCARCINOMA
     Route: 041
     Dates: start: 20210722
  3. BEVACIZUMAB. [Suspect]
     Active Substance: BEVACIZUMAB
     Route: 041
     Dates: start: 20210722
  4. CARBOPLATIN. [Concomitant]
     Active Substance: CARBOPLATIN
     Route: 041
     Dates: start: 20210722
  5. PACLITAXEL. [Concomitant]
     Active Substance: PACLITAXEL
     Route: 041
     Dates: start: 20210722

REACTIONS (4)
  - White blood cell count decreased [Recovered/Resolved]
  - Decreased appetite [Recovered/Resolved]
  - Rash [Unknown]
  - Neutrophil count decreased [Recovered/Resolved]

NARRATIVE: CASE EVENT DATE: 20210726
